FAERS Safety Report 14011207 (Version 1)
Quarter: 2017Q3

REPORT INFORMATION
  Report Type: Spontaneous
  Country: AU (occurrence: AU)
  Receive Date: 20170926
  Receipt Date: 20170926
  Transmission Date: 20171128
  Serious: Yes (Hospitalization, Other)
  Sender: FDA-Public Use
  Company Number: AU-009507513-1709AUS012038

PATIENT
  Age: 47 Year
  Sex: Female

DRUGS (3)
  1. MIRTAZAPINE GA [Suspect]
     Active Substance: MIRTAZAPINE
     Indication: PRODUCT USED FOR UNKNOWN INDICATION
     Dosage: 45 MG, QPM
     Route: 048
  2. DIAZEPAM. [Concomitant]
     Active Substance: DIAZEPAM
     Dosage: 5 MG, QPM
     Route: 048
  3. OLANZAPINE. [Concomitant]
     Active Substance: OLANZAPINE
     Dosage: 10 MG, BID
     Route: 048

REACTIONS (10)
  - Affective disorder [Unknown]
  - Schizoaffective disorder [Unknown]
  - Psychotic symptom [Unknown]
  - Dissociative disorder [Unknown]
  - Suicide attempt [Unknown]
  - Hallucination, visual [Unknown]
  - Hallucination, auditory [Unknown]
  - Borderline personality disorder [Unknown]
  - Intentional self-injury [Unknown]
  - Treatment failure [Unknown]
